FAERS Safety Report 14760761 (Version 1)
Quarter: 2018Q2

REPORT INFORMATION
  Report Type: Report from Study
  Country: US (occurrence: US)
  Receive Date: 20180414
  Receipt Date: 20180414
  Transmission Date: 20180711
  Serious: Yes (Death, Hospitalization)
  Sender: FDA-Public Use
  Company Number: US-JNJFOC-20180401996

PATIENT
  Age: 38 Year
  Sex: Female

DRUGS (2)
  1. TYLENOL 8HR [Suspect]
     Active Substance: ACETAMINOPHEN
     Route: 065
  2. TYLENOL 8HR [Suspect]
     Active Substance: ACETAMINOPHEN
     Indication: COMPLETED SUICIDE
     Route: 065

REACTIONS (6)
  - Toxicity to various agents [Fatal]
  - Blood creatine increased [Fatal]
  - Blood creatine phosphokinase increased [Fatal]
  - Transaminases increased [Fatal]
  - Brain death [Fatal]
  - Blood urea increased [Fatal]

NARRATIVE: CASE EVENT DATE: 20080318
